FAERS Safety Report 6742101-9 (Version None)
Quarter: 2010Q2

REPORT INFORMATION
  Report Type: 
  Country: None (occurrence: None)
  Receive Date: 20100524
  Receipt Date: 20100518
  Transmission Date: 20101027
  Serious: Yes (Other)
  Sender: FDA-Public Use
  Company Number: 010071

PATIENT
  Sex: Female

DRUGS (2)
  1. KEPPRA [Suspect]
     Indication: PARTIAL SEIZURES
     Dosage: 1 G ORAL
     Route: 048
  2. ZONEGRAN [Suspect]
     Indication: EPILEPSY
     Dosage: 100 MG ORAL
     Route: 048
     Dates: start: 20090401, end: 20090722

REACTIONS (2)
  - MOOD ALTERED [None]
  - POVERTY OF THOUGHT CONTENT [None]
